FAERS Safety Report 4368167-1 (Version None)
Quarter: 2004Q2

REPORT INFORMATION
  Report Type: 
  Country: None (occurrence: None)
  Receive Date: 20040602
  Receipt Date: 20021029
  Transmission Date: 20050107
  Serious: No
  Sender: FDA-Public Use
  Company Number: US-GLAXOSMITHKLINE-A0385454A

PATIENT
  Age: 66 Year
  Sex: Female
  Weight: 65.5 kg

DRUGS (2)
  1. AUGMENTIN [Suspect]
     Dosage: 1000MG TWICE PER DAY
     Route: 048
     Dates: start: 20020909, end: 20020915
  2. TETANUS SHOT [Suspect]
     Dates: start: 20020907, end: 20020907

REACTIONS (4)
  - ARTHRALGIA [None]
  - DIARRHOEA [None]
  - TONGUE DISORDER [None]
  - VAGINAL INFECTION [None]
